FAERS Safety Report 24387194 (Version 1)
Quarter: 2024Q4

REPORT INFORMATION
  Report Type: Spontaneous
  Country: US (occurrence: US)
  Receive Date: 20241002
  Receipt Date: 20241002
  Transmission Date: 20250114
  Serious: No
  Sender: QOL
  Company Number: US-QOL Medical, LLC-2162314

PATIENT
  Age: 4 Year
  Sex: Male
  Weight: 13.636 kg

DRUGS (2)
  1. SUCRAID [Suspect]
     Active Substance: SACROSIDASE
     Dates: start: 20230104, end: 20230118
  2. OMEPRAZOLE [Concomitant]
     Active Substance: OMEPRAZOLE

REACTIONS (2)
  - Diarrhoea [Recovered/Resolved]
  - Decreased appetite [Recovered/Resolved]

NARRATIVE: CASE EVENT DATE: 20230105
